FAERS Safety Report 5379917-X (Version None)
Quarter: 2007Q2

REPORT INFORMATION
  Report Type: 
  Country: None (occurrence: None)
  Receive Date: 20070530
  Receipt Date: 20070308
  Transmission Date: 20071010
  Serious: No
  Sender: FDA-Public Use
  Company Number: 2007PV031368

PATIENT
  Age: 66 Year
  Sex: Male
  Weight: 116.1208 kg

DRUGS (2)
  1. BYETTA [Suspect]
     Indication: DIABETES MELLITUS NON-INSULIN-DEPENDENT
     Dosage: 10 MCG;BID; SC; 5 MCG; BID; SC
     Route: 058
     Dates: start: 20070110, end: 20070201
  2. BYETTA [Suspect]
     Indication: DIABETES MELLITUS NON-INSULIN-DEPENDENT
     Dosage: 10 MCG;BID; SC; 5 MCG; BID; SC
     Route: 058
     Dates: start: 20070201

REACTIONS (4)
  - ANOREXIA [None]
  - DYSPEPSIA [None]
  - NAUSEA [None]
  - WEIGHT DECREASED [None]
